FAERS Safety Report 5380609-1 (Version None)
Quarter: 2007Q2

REPORT INFORMATION
  Report Type: 
  Country: None (occurrence: None)
  Receive Date: 20070530
  Receipt Date: 20070223
  Transmission Date: 20071010
  Serious: No
  Sender: FDA-Public Use
  Company Number: 2007PV030576

PATIENT
  Age: 65 Year
  Sex: Female
  Weight: 73.9363 kg

DRUGS (2)
  1. BYETTA [Suspect]
     Indication: DIABETES MELLITUS NON-INSULIN-DEPENDENT
     Dosage: 5 MCG; BID; SC
     Route: 058
     Dates: start: 20070212, end: 20070219
  2. METFORMIN HCL [Concomitant]

REACTIONS (5)
  - ANOREXIA [None]
  - CHILLS [None]
  - DEHYDRATION [None]
  - NAUSEA [None]
  - TREMOR [None]
